FAERS Safety Report 21951878 (Version 2)
Quarter: 2023Q1

REPORT INFORMATION
  Report Type: Spontaneous
  Country: US (occurrence: US)
  Receive Date: 20230203
  Receipt Date: 20230206
  Transmission Date: 20230418
  Serious: Yes (Other)
  Sender: FDA-Public Use
  Company Number: US-JNJFOC-20230162047

PATIENT
  Age: 67 Year
  Sex: Female
  Weight: 85.352 kg

DRUGS (16)
  1. REMICADE [Suspect]
     Active Substance: INFLIXIMAB
     Indication: Cardiac sarcoidosis
     Route: 041
     Dates: start: 20230120
  2. PREDNISONE [Suspect]
     Active Substance: PREDNISONE
     Indication: Product used for unknown indication
     Route: 065
  3. ALBUTEROL [Concomitant]
     Active Substance: ALBUTEROL
     Indication: Asthma
     Route: 055
  4. ELIQUIS [Concomitant]
     Active Substance: APIXABAN
     Indication: Blood disorder
  5. CALCITONIN SALMON [Concomitant]
     Active Substance: CALCITONIN SALMON
     Indication: Fracture
  6. JARDIANCE [Concomitant]
     Active Substance: EMPAGLIFLOZIN
  7. ADVAIR HFA [Concomitant]
     Active Substance: FLUTICASONE PROPIONATE\SALMETEROL XINAFOATE
     Indication: Asthma
  8. MEXILETINE [Concomitant]
     Active Substance: MEXILETINE
     Indication: Heart rate
  9. ENTRESTO [Concomitant]
     Active Substance: SACUBITRIL\VALSARTAN
  10. SPIRONOLACTONE [Concomitant]
     Active Substance: SPIRONOLACTONE
  11. TIOTROPIUM BROMIDE [Concomitant]
     Active Substance: TIOTROPIUM BROMIDE
  12. METOPROLOL [Concomitant]
     Active Substance: METOPROLOL
  13. FOLIC ACID [Concomitant]
     Active Substance: FOLIC ACID
  14. PANTOPRAZOLE [Concomitant]
     Active Substance: PANTOPRAZOLE
     Indication: Gastrooesophageal reflux disease
  15. FUROSEMIDE [Concomitant]
     Active Substance: FUROSEMIDE
  16. METHOTREXATE [Concomitant]
     Active Substance: METHOTREXATE
     Indication: Sarcoidosis

REACTIONS (9)
  - Ventricular fibrillation [Unknown]
  - Ventricular tachycardia [Unknown]
  - Spinal fracture [Unknown]
  - Influenza like illness [Unknown]
  - Head injury [Unknown]
  - Feeling abnormal [Unknown]
  - Swelling [Unknown]
  - Concussion [Unknown]
  - Off label use [Unknown]

NARRATIVE: CASE EVENT DATE: 20230123
